FAERS Safety Report 13903491 (Version 1)
Quarter: 2017Q3

REPORT INFORMATION
  Report Type: Spontaneous
  Country: GB (occurrence: GB)
  Receive Date: 20170824
  Receipt Date: 20170824
  Transmission Date: 20171127
  Serious: Yes (Other)
  Sender: FDA-Public Use
  Company Number: GB-BAUSCH-BL-2017-025196

PATIENT
  Age: 60 Year
  Sex: Male

DRUGS (3)
  1. LENALIDOMIDE [Suspect]
     Active Substance: LENALIDOMIDE
     Indication: CARDIAC AMYLOIDOSIS
     Dosage: OD FOR 21 DAYS OF 28-DAY CYCLE
     Route: 065
     Dates: start: 201409
  2. DEXAMETHASONE. [Suspect]
     Active Substance: DEXAMETHASONE
     Indication: CARDIAC AMYLOIDOSIS
     Dosage: WEEKLY
     Route: 065
     Dates: start: 201409
  3. ENOXAPARIN [Concomitant]
     Active Substance: ENOXAPARIN
     Indication: THROMBOSIS PROPHYLAXIS
     Dates: start: 201409

REACTIONS (2)
  - Neutropenia [Unknown]
  - Cushingoid [Unknown]
